FAERS Safety Report 7766246-X (Version None)
Quarter: 2011Q3

REPORT INFORMATION
  Report Type: 
  Country: None (occurrence: None)
  Receive Date: 20110921
  Receipt Date: 20110916
  Transmission Date: 20111222
  Serious: Yes (Hospitalization)
  Sender: FDA-Public Use
  Company Number: DE-BRISTOL-MYERS SQUIBB COMPANY-16077562

PATIENT
  Age: 77 Year
  Sex: Male

DRUGS (5)
  1. RANITIC [Concomitant]
     Indication: PREMEDICATION
     Dosage: BEFORE ADMINISTRATION OF CETUXIMAB.
     Dates: start: 20110914, end: 20110914
  2. GODAMED [Concomitant]
     Dosage: STARTED YEARS AGO AND ONGOING, DOSE 0-0-1.
  3. CETUXIMAB [Suspect]
     Indication: COLORECTAL CANCER METASTATIC
     Dosage: DISCONTINUED AFTER 5% PLANNED DOSE WAS GIVEN.
     Route: 042
     Dates: start: 20110914, end: 20110914
  4. METOPROLOL TARTRATE [Concomitant]
     Dosage: 0.5DF, 1/2-0-1/2,REDUCED DOSE 25MG(0.5DF,1/2-0-0), STARTED YEARS AGO AND ONGOING.
  5. CLEMASTINE FUMARATE [Concomitant]
     Indication: PREMEDICATION
     Dosage: BEFORE ADMINISTRATION OF CETUXIMAB.
     Route: 042
     Dates: start: 20110914, end: 20110914

REACTIONS (1)
  - CIRCULATORY COLLAPSE [None]
